FAERS Safety Report 5833642-7 (Version None)
Quarter: 2008Q3

REPORT INFORMATION
  Report Type: 
  Country: None (occurrence: None)
  Receive Date: 20080805
  Receipt Date: 20080723
  Transmission Date: 20090109
  Serious: Yes (Other)
  Sender: FDA-Public Use
  Company Number: JP-JNJFOC-20080703427

PATIENT
  Age: 67 Year
  Sex: Male

DRUGS (5)
  1. DOXORUBICIN HYDROCHLORIDE [Suspect]
     Indication: KAPOSI'S SARCOMA
     Route: 042
  2. CELECOX [Suspect]
     Indication: DRUG USE FOR UNKNOWN INDICATION
     Route: 048
  3. ZIAGEN [Concomitant]
     Route: 065
  4. KALETRA [Concomitant]
     Route: 065
  5. EPIVIR [Concomitant]
     Route: 065

REACTIONS (1)
  - COLITIS [None]
